FAERS Safety Report 15591402 (Version 1)
Quarter: 2018Q4

REPORT INFORMATION
  Report Type: Spontaneous
  Country: US (occurrence: US)
  Receive Date: 20181106
  Receipt Date: 20181106
  Transmission Date: 20190205
  Serious: No
  Sender: FDA-Public Use
  Company Number: US-PFIZER INC-2018439945

PATIENT
  Age: 67 Year
  Sex: Female
  Weight: 72 kg

DRUGS (2)
  1. GABAPENTIN. [Suspect]
     Active Substance: GABAPENTIN
     Indication: SCIATICA
     Dosage: 300 MG, 3X/DAY (TWO CAPSULES IN THE MORNING AND ONE AT NIGHT BY MOUTH)
     Route: 048
     Dates: start: 2014, end: 201809
  2. GABAPENTIN. [Suspect]
     Active Substance: GABAPENTIN
     Indication: STENOSIS

REACTIONS (1)
  - Drug ineffective for unapproved indication [Unknown]

NARRATIVE: CASE EVENT DATE: 2014
